FAERS Safety Report 9280563 (Version 5)
Quarter: 2013Q3

REPORT INFORMATION
  Report Type: Report from Study
  Country: PT (occurrence: PT)
  Receive Date: 20130509
  Receipt Date: 20130715
  Transmission Date: 20140515
  Serious: Yes (Hospitalization)
  Sender: FDA-Public Use
  Company Number: PT-ROCHE-1222291

PATIENT
  Age: 74 Year
  Sex: Male
  Weight: 57.6 kg

DRUGS (5)
  1. VISMODEGIB [Suspect]
     Indication: BASAL CELL CARCINOMA
     Dosage: THE DATE OF LAST CYCLE PATIENT PERFORMED: 10/APR/2013
     Route: 048
     Dates: start: 20130313, end: 20130504
  2. PARACETAMOL [Concomitant]
     Indication: BREAKTHROUGH PAIN
  3. LOVENOX [Concomitant]
     Indication: HYPOCOAGULABLE STATE
     Route: 065
     Dates: start: 20130504, end: 20130514
  4. SALBUTAMOL [Concomitant]
     Indication: RESPIRATORY FAILURE
     Route: 065
     Dates: start: 20130504
  5. IPRATROPIUM BROMIDE [Concomitant]
     Indication: RESPIRATORY FAILURE
     Route: 065
     Dates: start: 20130504

REACTIONS (1)
  - Congestive cardiomyopathy [Recovered/Resolved with Sequelae]
